FAERS Safety Report 8525917-8 (Version None)
Quarter: 2012Q3

REPORT INFORMATION
  Report Type: 
  Country: None (occurrence: None)
  Receive Date: 20120720
  Receipt Date: 20120717
  Transmission Date: 20120928
  Serious: No
  Sender: FDA-Public Use
  Company Number: US-PFIZER INC-2012172744

PATIENT
  Sex: Female
  Weight: 43.537 kg

DRUGS (1)
  1. DEPO-PROVERA [Suspect]
     Indication: ENDOMETRIOSIS
     Dosage: UNK
     Route: 058
     Dates: start: 20110401, end: 20110401

REACTIONS (7)
  - DEPRESSION [None]
  - HEADACHE [None]
  - ALOPECIA [None]
  - HOT FLUSH [None]
  - INSOMNIA [None]
  - ACNE [None]
  - ORAL PAIN [None]
